FAERS Safety Report 11831748 (Version 1)
Quarter: 2015Q4

REPORT INFORMATION
  Report Type: Spontaneous
  Country: US (occurrence: None)
  Receive Date: 20151211
  Receipt Date: 20151211
  Transmission Date: 20160305
  Serious: Yes (Hospitalization)
  Sender: FDA-Public Use
  Company Number: None

PATIENT
  Age: 17 Year
  Sex: Female

DRUGS (1)
  1. BACTRIM [Suspect]
     Active Substance: SULFAMETHOXAZOLE\TRIMETHOPRIM
     Dates: start: 20140112, end: 20140130

REACTIONS (8)
  - Thrombocytopenia [None]
  - Hypoalbuminaemia [None]
  - International normalised ratio increased [None]
  - Gallbladder disorder [None]
  - Drug-induced liver injury [None]
  - Rash [None]
  - Pyrexia [None]
  - Orthostatic hypotension [None]

NARRATIVE: CASE EVENT DATE: 20140210
